FAERS Safety Report 23785978 (Version 1)
Quarter: 2024Q2

REPORT INFORMATION
  Report Type: Report from Study
  Country: US (occurrence: US)
  Receive Date: 20240426
  Receipt Date: 20240426
  Transmission Date: 20240715
  Serious: Yes (Other)
  Sender: FDA-Public Use
  Company Number: US-ABBVIE-5734251

PATIENT
  Sex: Male

DRUGS (1)
  1. REFRESH P.M. [Suspect]
     Active Substance: MINERAL OIL\PETROLATUM
     Indication: Product used for unknown indication
     Dosage: MINERAL OIL 425MG/ML;WHITE PETROLATUM 573MG/ML PF ONT
     Route: 047

REACTIONS (4)
  - Blindness unilateral [Unknown]
  - Intraocular pressure increased [Unknown]
  - Dry eye [Unknown]
  - Glaucoma [Unknown]
